FAERS Safety Report 12552096 (Version 2)
Quarter: 2016Q3

REPORT INFORMATION
  Report Type: Spontaneous
  Country: PL (occurrence: PL)
  Receive Date: 20160713
  Receipt Date: 20160825
  Transmission Date: 20161109
  Serious: Yes (Hospitalization)
  Sender: FDA-Public Use
  Company Number: PL-TEVA-674605ISR

PATIENT

DRUGS (3)
  1. CEFACLOR. [Suspect]
     Active Substance: CEFACLOR
  2. AZITHROMYCIN ANHYDROUS. [Suspect]
     Active Substance: AZITHROMYCIN ANHYDROUS
  3. CEFUROXIME. [Suspect]
     Active Substance: CEFUROXIME

REACTIONS (2)
  - Pyrexia [Unknown]
  - Drug ineffective [Recovered/Resolved]
